FAERS Safety Report 5078889-5 (Version None)
Quarter: 2006Q3

REPORT INFORMATION
  Report Type: 
  Country: None (occurrence: None)
  Receive Date: 20060809
  Receipt Date: 20060809
  Transmission Date: 20061208
  Serious: No
  Sender: FDA-Public Use
  Company Number: None

PATIENT
  Sex: Female
  Weight: 86.637 kg

DRUGS (2)
  1. ZOCOR [Suspect]
     Indication: HYPERLIPIDAEMIA
     Dosage: 20 MG PO QD
     Route: 048
     Dates: start: 20050901, end: 20051001
  2. LIPITOR [Suspect]

REACTIONS (2)
  - DRUG INTOLERANCE [None]
  - MUSCLE SPASMS [None]
